FAERS Safety Report 20819873 (Version 1)
Quarter: 2022Q2

REPORT INFORMATION
  Report Type: Spontaneous
  Country: ES (occurrence: ES)
  Receive Date: 20220512
  Receipt Date: 20220512
  Transmission Date: 20220720
  Serious: Yes (Other)
  Sender: FDA-Public Use
  Company Number: None

PATIENT
  Age: 49 Year
  Sex: Female

DRUGS (1)
  1. COSENTYX [Suspect]
     Active Substance: SECUKINUMAB
     Indication: Spondyloarthropathy
     Dosage: UNK (300 MG/ 4 SEMANAS)
     Route: 058
     Dates: start: 20180621

REACTIONS (1)
  - Bacterial vaginosis [Recovered/Resolved]

NARRATIVE: CASE EVENT DATE: 20210611
